FAERS Safety Report 7073333-0 (Version None)
Quarter: 2010Q4

REPORT INFORMATION
  Report Type: 
  Country: None (occurrence: None)
  Receive Date: 20101029
  Receipt Date: 20100707
  Transmission Date: 20110411
  Serious: No
  Sender: FDA-Public Use
  Company Number: A0862759A

PATIENT
  Age: 60 Year
  Sex: Female

DRUGS (17)
  1. ADVAIR DISKUS 100/50 [Suspect]
     Indication: CHRONIC OBSTRUCTIVE PULMONARY DISEASE
     Route: 055
  2. SINGULAIR [Concomitant]
  3. LASIX [Concomitant]
  4. POTASSIUM CHLORIDE [Concomitant]
  5. COZAAR [Concomitant]
  6. COREG [Concomitant]
  7. DIGOXIN [Concomitant]
  8. CYMBALTA [Concomitant]
  9. UNKNOWN MEDICATION [Concomitant]
  10. PAXIL CR [Concomitant]
  11. SYNTHROID [Concomitant]
  12. AROMASIN [Concomitant]
  13. XYZAL [Concomitant]
  14. BIOTIN [Concomitant]
  15. UNKNOWN MEDICATION [Concomitant]
  16. LUNESTA [Concomitant]
  17. DEPLIN [Concomitant]

REACTIONS (4)
  - ACCIDENTAL OVERDOSE [None]
  - DRUG ADMINISTRATION ERROR [None]
  - INCORRECT DOSE ADMINISTERED BY DEVICE [None]
  - MEDICATION ERROR [None]
